FAERS Safety Report 10297860 (Version 6)
Quarter: 2016Q1

REPORT INFORMATION
  Report Type: Report from Study
  Country: US (occurrence: US)
  Receive Date: 20140711
  Receipt Date: 20160104
  Transmission Date: 20160525
  Serious: Yes (Hospitalization, Other)
  Sender: FDA-Public Use
  Company Number: US-SANOFI-AVENTIS-2013SA040394

PATIENT
  Age: 62 Year
  Sex: Female
  Weight: 66.6 kg

DRUGS (14)
  1. ALBUTEROL. [Concomitant]
     Active Substance: ALBUTEROL
     Indication: ASTHMA
     Dosage: DOSAGE: 01 PUFF
  2. ACTIVELLA [Concomitant]
     Active Substance: ESTRADIOL\NORETHINDRONE ACETATE
     Indication: HORMONE REPLACEMENT THERAPY
  3. VITAMIN E [Concomitant]
     Active Substance: .ALPHA.-TOCOPHEROL
  4. AUBAGIO [Suspect]
     Active Substance: TERIFLUNOMIDE
     Indication: MULTIPLE SCLEROSIS
     Route: 048
     Dates: start: 20151009
  5. GABAPENTIN. [Concomitant]
     Active Substance: GABAPENTIN
  6. CARVEDILOL. [Concomitant]
     Active Substance: CARVEDILOL
  7. FISH OIL [Concomitant]
     Active Substance: FISH OIL
  8. COQ10 [Concomitant]
     Active Substance: UBIDECARENONE
  9. PRILOSEC [Concomitant]
     Active Substance: OMEPRAZOLE MAGNESIUM
     Indication: ASTHMA
     Dosage: STRENGTH: 20 MG
  10. RED YEAST RICE [Concomitant]
     Active Substance: DIETARY SUPPLEMENT
  11. VITAMIN D3 [Concomitant]
     Active Substance: CHOLECALCIFEROL
  12. ALVESCO [Concomitant]
     Active Substance: CICLESONIDE
     Indication: ASTHMA
     Dosage: DOSAGE: 1 PUFF, TWO TIMES PER DAY.
  13. AUBAGIO [Suspect]
     Active Substance: TERIFLUNOMIDE
     Indication: MULTIPLE SCLEROSIS
     Route: 048
     Dates: start: 201203, end: 20140728
  14. VITAMIN C [Concomitant]
     Active Substance: ASCORBIC ACID

REACTIONS (13)
  - Intervertebral disc protrusion [Recovered/Resolved]
  - Frequent bowel movements [Recovering/Resolving]
  - Back pain [Unknown]
  - Depression [Unknown]
  - Skin lesion [Unknown]
  - Pruritus [Unknown]
  - Nausea [Recovering/Resolving]
  - Fatigue [Not Recovered/Not Resolved]
  - Erythema [Unknown]
  - Burning sensation [Recovering/Resolving]
  - Pain [Recovering/Resolving]
  - Staphylococcal infection [Recovered/Resolved]
  - Rash [Recovering/Resolving]

NARRATIVE: CASE EVENT DATE: 2014
